FAERS Safety Report 5215440-0 (Version None)
Quarter: 2007Q1

REPORT INFORMATION
  Report Type: 
  Country: None (occurrence: None)
  Receive Date: 20070119
  Receipt Date: 20070119
  Transmission Date: 20070707
  Serious: Yes (Life-Threatening, Hospitalization)
  Sender: FDA-Public Use
  Company Number: None

PATIENT
  Age: 29 Year
  Sex: Male
  Weight: 85.7 kg

DRUGS (10)
  1. CYCLOPHOSPHAMIDE [Suspect]
     Indication: MICROSCOPIC POLYANGIITIS
     Dosage: 300MG DAILY PO
     Route: 048
     Dates: start: 20061001, end: 20061230
  2. FUROSEMIDE [Concomitant]
  3. CALCIUM ACETATE [Concomitant]
  4. FERROUS SULFATE TAB [Concomitant]
  5. DILTIAZEM [Concomitant]
  6. OSCAL  500 + D [Concomitant]
  7. NEXIUM [Concomitant]
  8. BACTRIM DS [Concomitant]
  9. LISINOPRIL [Concomitant]
  10. PREDNISONE [Concomitant]

REACTIONS (5)
  - ABDOMINAL PAIN UPPER [None]
  - APLASTIC ANAEMIA [None]
  - CYTOMEGALOVIRUS TEST POSITIVE [None]
  - NEUTROPENIA [None]
  - PANCYTOPENIA [None]
